FAERS Safety Report 5624570-0 (Version None)
Quarter: 2008Q1

REPORT INFORMATION
  Report Type: 
  Country: None (occurrence: None)
  Receive Date: 20080213
  Receipt Date: 20070924
  Transmission Date: 20080703
  Serious: No
  Sender: FDA-Public Use
  Company Number: US-ASTRAZENECA-2007UW25517

PATIENT
  Age: 14776 Day
  Sex: Female
  Weight: 136.4 kg

DRUGS (13)
  1. SEROQUEL [Suspect]
     Indication: SCHIZOPHRENIA
     Dosage: 100 MG - 300 MG
     Dates: start: 20010301
  2. HALOPERIDOL [Concomitant]
     Dates: start: 20000101
  3. THORAZINE [Concomitant]
     Dates: start: 20000101
  4. ZYPREXA [Concomitant]
     Route: 048
     Dates: start: 20000101, end: 20010101
  5. PRILOSEC [Concomitant]
     Route: 048
     Dates: start: 20030327
  6. CARDIZEM CD [Concomitant]
     Route: 048
  7. BENADRYL [Concomitant]
     Route: 048
     Dates: start: 20060602
  8. FERROUS SULFATE TAB [Concomitant]
     Route: 048
     Dates: start: 20060502
  9. ZANTAC [Concomitant]
     Route: 048
     Dates: start: 20051109
  10. HALDOL [Concomitant]
     Route: 048
  11. HALDOL [Concomitant]
     Route: 030
  12. COGENTIN [Concomitant]
     Route: 048
  13. HYDROCHLOROTHIAZIDE [Concomitant]
     Route: 048

REACTIONS (8)
  - ANAEMIA [None]
  - BLOOD CHOLESTEROL INCREASED [None]
  - DIABETES MELLITUS [None]
  - GASTROOESOPHAGEAL REFLUX DISEASE [None]
  - GENITAL HERPES [None]
  - HYPERTENSION [None]
  - INSOMNIA [None]
  - OBESITY [None]
